FAERS Safety Report 15691535 (Version 1)
Quarter: 2018Q4

REPORT INFORMATION
  Report Type: Spontaneous
  Country: US (occurrence: US)
  Receive Date: 20181205
  Receipt Date: 20181205
  Transmission Date: 20190205
  Serious: No
  Sender: FDA-Public Use
  Company Number: US-BAYER-2018-224853

PATIENT
  Sex: Female

DRUGS (2)
  1. ALEVE [Suspect]
     Active Substance: NAPROXEN SODIUM
     Dosage: 2 DF
     Route: 048
     Dates: start: 20181203
  2. ALEVE [Suspect]
     Active Substance: NAPROXEN SODIUM
     Dosage: 1 UNK
     Route: 048
     Dates: start: 20181204

REACTIONS (2)
  - Expired product administered [Unknown]
  - Drug ineffective [Unknown]

NARRATIVE: CASE EVENT DATE: 20181203
